FAERS Safety Report 5898779-5 (Version None)
Quarter: 2008Q3

REPORT INFORMATION
  Report Type: 
  Country: None (occurrence: None)
  Receive Date: 20080925
  Receipt Date: 20080612
  Transmission Date: 20090109
  Serious: No
  Sender: FDA-Public Use
  Company Number: A0732692A

PATIENT
  Age: 48 Year
  Sex: Female

DRUGS (2)
  1. WELLBUTRIN XL [Suspect]
     Indication: DEPRESSION
     Dosage: 300MG PER DAY
     Route: 048
     Dates: start: 20030101, end: 20070701
  2. ABILIFY [Suspect]
     Indication: ANXIETY
     Dosage: 15MG PER DAY
     Route: 048
     Dates: end: 20070701

REACTIONS (1)
  - TREMOR [None]
